FAERS Safety Report 5150311-X (Version None)
Quarter: 2006Q4

REPORT INFORMATION
  Report Type: 
  Country: None (occurrence: None)
  Receive Date: 20061114
  Receipt Date: 20060906
  Transmission Date: 20070319
  Serious: Yes (Other)
  Sender: FDA-Public Use
  Company Number: PHEH2006US11377

PATIENT
  Age: 90 Year
  Sex: Male

DRUGS (6)
  1. ZOMETA [Suspect]
     Indication: PROSTATE CANCER METASTATIC
     Dosage: MONTHLY
     Dates: start: 20060208, end: 20060726
  2. ASPIRIN [Concomitant]
     Indication: ARRHYTHMIA
     Dosage: 81 MG, QD
  3. PINDOLOL [Concomitant]
     Indication: HYPERTENSION
     Dosage: 5 MG, QD
  4. DIGOXIN [Concomitant]
     Indication: ARRHYTHMIA
     Dosage: 0.5 MG, QD
  5. CASODEX [Concomitant]
     Indication: PROSTATE CANCER
     Dosage: 50 MG, QD
     Dates: start: 20051201
  6. LUPRON [Concomitant]
     Indication: PROSTATE CANCER
     Dosage: 30MG Q16WEEKS
     Dates: start: 19910101

REACTIONS (7)
  - BLOOD CREATININE INCREASED [None]
  - BLOOD UREA INCREASED [None]
  - MALIGNANT NEOPLASM PROGRESSION [None]
  - NOCTURIA [None]
  - POLLAKIURIA [None]
  - RENAL CYST [None]
  - URINE ANALYSIS ABNORMAL [None]
